FAERS Safety Report 21144898 (Version 1)
Quarter: 2022Q3

REPORT INFORMATION
  Report Type: Report from Study
  Country: HU (occurrence: HU)
  Receive Date: 20220728
  Receipt Date: 20220728
  Transmission Date: 20221026
  Serious: Yes (Hospitalization)
  Sender: FDA-Public Use
  Company Number: HU-ABBVIE-22K-076-4484844-00

PATIENT
  Sex: Female

DRUGS (10)
  1. CARBIDOPA\LEVODOPA [Suspect]
     Active Substance: CARBIDOPA\LEVODOPA
     Indication: Parkinson^s disease
     Dosage: MORNING DOSE: 9.0 ML; CONTINUOUS DOSE: 3.0 ML/HOUR; EXTRA DOSE: 2.7 ML
     Route: 050
     Dates: start: 20181220
  2. CARBIDOPA\LEVODOPA [Suspect]
     Active Substance: CARBIDOPA\LEVODOPA
  3. BENSERAZIDE HYDROCHLORIDE\LEVODOPA [Concomitant]
     Active Substance: BENSERAZIDE HYDROCHLORIDE\LEVODOPA
     Indication: Parkinson^s disease
     Dosage: HALF A TABLET AT NIGHT, AS REQUIRED
     Route: 048
     Dates: start: 201812
  4. BENSERAZIDE HYDROCHLORIDE\LEVODOPA [Concomitant]
     Active Substance: BENSERAZIDE HYDROCHLORIDE\LEVODOPA
     Dosage: 200 MG LEVODOPA, 50 MG BENSERAZIDE / TABLET, HALF A TABLET AT NIGHT, AS REQUIRED
     Route: 048
     Dates: start: 202203
  5. LORDESTIN [Concomitant]
     Indication: Hypersensitivity
     Route: 048
     Dates: start: 201901
  6. BISOPROLOL [Concomitant]
     Active Substance: BISOPROLOL
     Indication: Hypertension
     Dosage: HALF TABLET DAILY
     Route: 048
     Dates: start: 2017
  7. DONESTAD [Concomitant]
     Indication: Cognitive disorder
     Route: 048
     Dates: start: 202204
  8. QUETIAPINE FUMARATE [Concomitant]
     Active Substance: QUETIAPINE FUMARATE
     Indication: Hallucination
     Route: 048
     Dates: start: 202204
  9. ESOMEPRAZOLE MAGNESIUM [Concomitant]
     Active Substance: ESOMEPRAZOLE MAGNESIUM
     Indication: Product used for unknown indication
     Route: 048
  10. BENFOTIAMINE [Concomitant]
     Active Substance: BENFOTIAMINE
     Indication: Product used for unknown indication
     Route: 048

REACTIONS (3)
  - General physical health deterioration [Not Recovered/Not Resolved]
  - Inflammatory marker increased [Unknown]
  - Hallucination [Unknown]

NARRATIVE: CASE EVENT DATE: 20220301
